FAERS Safety Report 5603394-4 (Version None)
Quarter: 2008Q1

REPORT INFORMATION
  Report Type: 
  Country: None (occurrence: None)
  Receive Date: 20080123
  Receipt Date: 20080108
  Transmission Date: 20080703
  Serious: Yes (Disabling)
  Sender: FDA-Public Use
  Company Number: S08-FRA-00224-01

PATIENT
  Age: 50 Year
  Sex: Male

DRUGS (4)
  1. ESCITALOPRAM [Suspect]
     Indication: DEPRESSION
     Dates: start: 20070201
  2. CLONAZEPAM [Concomitant]
  3. ZOLPIDEM TARTRATE [Concomitant]
  4. PROPOFAN [Concomitant]

REACTIONS (3)
  - EYE DISORDER [None]
  - HYPERMETROPIA [None]
  - PRESBYOPIA [None]
